FAERS Safety Report 8244927-1 (Version None)
Quarter: 2012Q1

REPORT INFORMATION
  Report Type: 
  Country: None (occurrence: None)
  Receive Date: 20120329
  Receipt Date: 20110916
  Transmission Date: 20120608
  Serious: No
  Sender: FDA-Public Use
  Company Number: US-MYLANLABS-2011S1019742

PATIENT
  Sex: Female

DRUGS (1)
  1. FENTANYL-100 [Suspect]
     Route: 062
     Dates: start: 20050101

REACTIONS (4)
  - FAECAL INCONTINENCE [None]
  - APPLICATION SITE RASH [None]
  - DIARRHOEA [None]
  - NAUSEA [None]
